FAERS Safety Report 16754701 (Version 1)
Quarter: 2019Q4

REPORT INFORMATION
  Report Type: Spontaneous
  Country: US (occurrence: US)
  Receive Date: 20190828
  Receipt Date: 20190828
  Transmission Date: 20200122
  Serious: Yes (Disabling, Other)
  Sender: FDA-Public Use
  Company Number: None

PATIENT
  Age: 34 Year
  Sex: Female
  Weight: 79.2 kg

DRUGS (1)
  1. NATURE-THROID [Suspect]
     Active Substance: THYROID, PORCINE
     Indication: HYPOTHYROIDISM
     Dosage: ?          QUANTITY:0.75 TABLET(S);?
     Route: 048
     Dates: start: 20150824, end: 20190815

REACTIONS (9)
  - Anxiety [None]
  - Chest discomfort [None]
  - Dyspnoea [None]
  - Hemianaesthesia [None]
  - Hyperhidrosis [None]
  - Muscle tightness [None]
  - Dizziness [None]
  - Insomnia [None]
  - Disturbance in attention [None]

NARRATIVE: CASE EVENT DATE: 20190715
